FAERS Safety Report 8399885-6 (Version None)
Quarter: 2012Q2

REPORT INFORMATION
  Report Type: 
  Country: None (occurrence: None)
  Receive Date: 20120531
  Receipt Date: 20120521
  Transmission Date: 20120825
  Serious: Yes (Hospitalization, Other)
  Sender: FDA-Public Use
  Company Number: IE-ELI_LILLY_AND_COMPANY-IE201205007435

PATIENT
  Sex: Female
  Weight: 73 kg

DRUGS (11)
  1. NEBIVOLOL [Concomitant]
     Dosage: UNK
     Dates: start: 20070131, end: 20111114
  2. RASILEZ [Concomitant]
     Indication: HYPERTENSION
     Dosage: 150 MG, BID
     Dates: start: 20110411, end: 20110515
  3. IBANDRONATE SODIUM [Concomitant]
     Dosage: UNK
     Dates: start: 20070516, end: 20110915
  4. BUMETANIDE [Concomitant]
     Dosage: 1 MG, QD
  5. RASILEZ [Concomitant]
     Dosage: 300 MG, UNK
     Dates: start: 20110518, end: 20110920
  6. AMLODIPINE [Concomitant]
     Dosage: UNK
     Dates: start: 20110519, end: 20111114
  7. EXFORGE [Concomitant]
     Dosage: UNK
     Dates: end: 20110411
  8. LANSOPRAZOLE [Concomitant]
     Dosage: UNK
     Dates: start: 20110126, end: 20111114
  9. FORTEO [Suspect]
     Dosage: UNK
  10. ATORVASTATIN CALCIUM [Concomitant]
     Dosage: UNK
     Dates: start: 20100210, end: 20111114
  11. CLOPIDOGREL [Concomitant]
     Dosage: UNK
     Dates: start: 20110611, end: 20111114

REACTIONS (1)
  - HYPONATRAEMIA [None]
